FAERS Safety Report 23907922 (Version 2)
Quarter: 2024Q2

REPORT INFORMATION
  Report Type: Spontaneous
  Country: BE (occurrence: BE)
  Receive Date: 20240528
  Receipt Date: 20240528
  Transmission Date: 20240716
  Serious: Yes (Other)
  Sender: FDA-Public Use
  Company Number: BE-002147023-NVSC2024BE082888

PATIENT
  Age: 4 Year
  Sex: Male

DRUGS (11)
  1. METHOTREXATE SODIUM [Suspect]
     Active Substance: METHOTREXATE SODIUM
     Dosage: 15 MG/M2, QW
     Route: 048
     Dates: start: 202111, end: 202309
  2. TOFACITINIB CITRATE [Suspect]
     Active Substance: TOFACITINIB CITRATE
     Dosage: QD (2 X 3.2 ML/DAY=0.3 MG/KG/DAY)
     Dates: start: 202309
  3. ILARIS [Suspect]
     Active Substance: CANAKINUMAB
     Indication: Still^s disease
     Dosage: FREQ:4 WK;75 MG, Q4W (4 MG/KG/DOSIS=75 MG))
     Route: 065
     Dates: start: 20230403
  4. ILARIS [Suspect]
     Active Substance: CANAKINUMAB
     Dosage: FREQ:4 WK;100 MG, Q4W (5 MG/KG/4 WEEKS)
     Route: 065
     Dates: start: 202309
  5. ILARIS [Suspect]
     Active Substance: CANAKINUMAB
     Dosage: 150 MG, Q3W (7,5 MG/KG)
     Route: 065
     Dates: start: 20240202
  6. TOCILIZUMAB [Suspect]
     Active Substance: TOCILIZUMAB
     Indication: Product used for unknown indication
     Dosage: UNK (IV ANTI IL6)
     Route: 065
     Dates: start: 202111
  7. PREDNISOLONE [Suspect]
     Active Substance: PREDNISOLONE
     Indication: Product used for unknown indication
     Dosage: 0.5 MG/KG
     Route: 065
  8. PREDNISOLONE [Suspect]
     Active Substance: PREDNISOLONE
     Dosage: 2 MG/KG
     Route: 048
     Dates: start: 202111, end: 20220602
  9. PREDNISOLONE [Suspect]
     Active Substance: PREDNISOLONE
     Dosage: 2 MG/KG, QD
     Route: 048
     Dates: start: 20230403
  10. PREDNISOLONE [Suspect]
     Active Substance: PREDNISOLONE
     Dosage: 1 MG/KG, QD
     Route: 048
     Dates: start: 202309
  11. PREDNISOLONE [Suspect]
     Active Substance: PREDNISOLONE
     Dosage: UNK, QD (LESS THAN 0.7 MG/KG)
     Route: 048
     Dates: start: 202309

REACTIONS (4)
  - Polyarthritis [Not Recovered/Not Resolved]
  - Condition aggravated [Not Recovered/Not Resolved]
  - Interleukin level increased [Unknown]
  - Off label use [Unknown]
